FAERS Safety Report 15343106 (Version 1)
Quarter: 2018Q3

REPORT INFORMATION
  Report Type: Spontaneous
  Country: FR (occurrence: FR)
  Receive Date: 20180903
  Receipt Date: 20180903
  Transmission Date: 20181010
  Serious: Yes (Other)
  Sender: FDA-Public Use
  Company Number: FR-BRISTOL-MYERS SQUIBB COMPANY-BMS-2018-080669

PATIENT
  Age: 66 Year
  Sex: Male
  Weight: 108 kg

DRUGS (2)
  1. ELIQUIS [Suspect]
     Active Substance: APIXABAN
     Indication: PULMONARY EMBOLISM
     Dosage: 10 MG, IN 1DAY INTERVAL (FREQUENCY UNSPECIFIED)
     Route: 048
     Dates: start: 20180720, end: 20180723
  2. XARELTO [Suspect]
     Active Substance: RIVAROXABAN
     Indication: PULMONARY EMBOLISM
     Dosage: 30 MG, IN 1DAY INTERVAL (FREQUENCY UNSPECIFIED)
     Route: 048
     Dates: start: 20180714, end: 20180720

REACTIONS (3)
  - Rash morbilliform [Not Recovered/Not Resolved]
  - Prescribed underdose [Unknown]
  - Toxic skin eruption [Not Recovered/Not Resolved]

NARRATIVE: CASE EVENT DATE: 20180720
